FAERS Safety Report 5198166-1 (Version None)
Quarter: 2007Q1

REPORT INFORMATION
  Report Type: 
  Country: None (occurrence: None)
  Receive Date: 20070104
  Receipt Date: 20061226
  Transmission Date: 20070707
  Serious: Yes (Hospitalization)
  Sender: FDA-Public Use
  Company Number: JP-ROCHE-476624

PATIENT
  Age: 72 Year
  Sex: Female

DRUGS (16)
  1. CELLCEPT [Suspect]
     Indication: PEMPHIGOID
     Dosage: CANCELLED FOR A DAY.
     Route: 048
     Dates: start: 20060722, end: 20061225
  2. CELLCEPT [Suspect]
     Dosage: RESTARTED BECAUSE OF EXACERBATION OF THE PEMPHIGOID.
     Route: 048
     Dates: start: 20061226
  3. BETAMETHASONE SODIUM PHOSPHATE [Suspect]
     Dosage: FORM: ORAL FORMULATION (NOT OTHERWISE SPECIFIED). DRUG REPORTED AS RINDERON (BETAMETHASONE) (0.5).
     Route: 048
     Dates: start: 20060722, end: 20061024
  4. PREDONINE [Suspect]
     Dosage: DOSE REPORTED AS 20-25 MG. DRUG REPORTED AS PREDONINE (PREDONISOLONE) (5).
     Route: 048
     Dates: start: 20061025, end: 20061214
  5. SOL-MELCORT [Suspect]
     Route: 041
     Dates: start: 20060920, end: 20060922
  6. ENDOXAN [Concomitant]
     Dosage: GIVEN ON 06 OCTOBER 2006 AND 20 NOVEMBER 2006.
     Route: 041
     Dates: start: 20061006, end: 20061120
  7. BONALON [Concomitant]
     Route: 048
     Dates: start: 20060722, end: 20061214
  8. OMEPRAL [Concomitant]
     Route: 048
     Dates: start: 20060722, end: 20061214
  9. ALFAROL [Concomitant]
     Route: 048
     Dates: start: 20060722, end: 20061214
  10. MINOCYCLINE HCL [Concomitant]
     Dosage: FORM: ORAL FORMULATION (NOT OTHERWISE SPECIFIED).
     Route: 048
     Dates: start: 20060722, end: 20061214
  11. NICOTINAMIDE [Concomitant]
     Route: 048
     Dates: start: 20060722, end: 20061214
  12. NOVORAPID [Concomitant]
     Dosage: DOSE REPORTED AS 30-34 UT.
     Route: 058
     Dates: start: 20060722, end: 20061214
  13. PLETAL [Concomitant]
     Route: 048
     Dates: start: 20060803, end: 20061031
  14. ADONA [Concomitant]
     Route: 048
     Dates: start: 20060803, end: 20061214
  15. WARFARIN SODIUM [Concomitant]
     Dosage: DOSE REPORTED AS 3-5 MG.
     Route: 048
     Dates: start: 20060803, end: 20060812
  16. ASPIRIN [Concomitant]
     Route: 048
     Dates: start: 20060929, end: 20061214

REACTIONS (3)
  - CEREBRAL INFARCTION [None]
  - CONDITION AGGRAVATED [None]
  - PEMPHIGOID [None]
